FAERS Safety Report 18592740 (Version 2)
Quarter: 2021Q1

REPORT INFORMATION
  Report Type: Spontaneous
  Country: US (occurrence: US)
  Receive Date: 20201208
  Receipt Date: 20210109
  Transmission Date: 20210419
  Serious: Yes (Life-Threatening, Hospitalization)
  Sender: FDA-Public Use
  Company Number: US-TEVA-2020-US-1856262

PATIENT
  Age: 74 Year
  Sex: Male
  Weight: 75 kg

DRUGS (15)
  1. PRAVASTATIN. [Concomitant]
     Active Substance: PRAVASTATIN
     Indication: PRODUCT USED FOR UNKNOWN INDICATION
     Dosage: 20 MILLIGRAM DAILY;
     Route: 065
  2. MEMANTINE. [Concomitant]
     Active Substance: MEMANTINE
     Indication: BEHAVIOURAL THERAPY
     Route: 065
  3. INSULIN?GLARGINE [Concomitant]
     Active Substance: INSULIN NOS
     Indication: TYPE 2 DIABETES MELLITUS
     Dosage: THE MAN RECEIVED 15 UNIT OF INSULIN?GLARGINE
     Route: 065
  4. MELATONIN [Concomitant]
     Active Substance: MELATONIN
     Indication: INSOMNIA
     Dosage: 3 MILLIGRAM DAILY; THE MAN RECEIVED MELATONIN ONCE PER EVENING
     Route: 065
  5. METFORMIN [Concomitant]
     Active Substance: METFORMIN HYDROCHLORIDE
     Indication: TYPE 2 DIABETES MELLITUS
     Dosage: 2000 MILLIGRAM DAILY;
     Route: 065
  6. VENLAFAXINE [Suspect]
     Active Substance: VENLAFAXINE HYDROCHLORIDE
     Indication: DEPRESSIVE SYMPTOM
     Dosage: 75 MILLIGRAM DAILY;
     Route: 065
     Dates: start: 201607, end: 201802
  7. DIVALPROEX SODIUM. [Suspect]
     Active Substance: DIVALPROEX SODIUM
     Indication: MIGRAINE PROPHYLAXIS
     Route: 065
     Dates: start: 201605, end: 201801
  8. DONEPEZIL. [Suspect]
     Active Substance: DONEPEZIL
     Indication: AGITATION
     Dosage: 10 MILLIGRAM DAILY;
     Route: 065
     Dates: start: 2016
  9. DONEPEZIL. [Suspect]
     Active Substance: DONEPEZIL
     Indication: AGGRESSION
  10. QUETIAPINE. [Suspect]
     Active Substance: QUETIAPINE
     Indication: AGGRESSION
     Dosage: 50 MILLIGRAM DAILY;
     Route: 065
     Dates: end: 20180212
  11. DIVALPROEX SODIUM. [Suspect]
     Active Substance: DIVALPROEX SODIUM
     Indication: MOOD SWINGS
     Route: 065
     Dates: start: 20180131
  12. TAMSULOSIN [Concomitant]
     Active Substance: TAMSULOSIN
     Indication: PRODUCT USED FOR UNKNOWN INDICATION
     Dosage: .4 MILLIGRAM DAILY; THE MAN RECEIVED TAMSULOSIN ONCE PER EVENING
     Route: 065
  13. QUETIAPINE. [Suspect]
     Active Substance: QUETIAPINE
     Indication: AGGRESSION
     Dosage: AFTER STOPPING THE DRUG ON 12 FEBRUARY 2018, IT WAS RESTARTED ON 21 FEBRUARY 2018 WITH 25MG AND D...
     Dates: start: 201903
  14. TRAZODONE [Suspect]
     Active Substance: TRAZODONE HYDROCHLORIDE
     Indication: DEPRESSION
     Dosage: THE MAN RECEIVED TRAZODONE AS NEEDED (TAKEN 2 TO 3TIMES PER WEEK)
     Route: 065
     Dates: end: 201802
  15. VENLAFAXINE [Suspect]
     Active Substance: VENLAFAXINE HYDROCHLORIDE
     Indication: MIGRAINE PROPHYLAXIS

REACTIONS (1)
  - Serotonin syndrome [Recovered/Resolved]

NARRATIVE: CASE EVENT DATE: 20180212
